FAERS Safety Report 7481457-9 (Version None)
Quarter: 2011Q2

REPORT INFORMATION
  Report Type: 
  Country: None (occurrence: None)
  Receive Date: 20110516
  Receipt Date: 20110512
  Transmission Date: 20111010
  Serious: Yes (Death, Other)
  Sender: FDA-Public Use
  Company Number: PHHY2011CH39857

PATIENT
  Age: 9 Year
  Sex: Female

DRUGS (8)
  1. SANDIMMUNE [Suspect]
     Indication: STEM CELL TRANSPLANT
     Dosage: 4 MG/KG, UNK
     Route: 041
  2. FLUDARABINE PHOSPHATE [Concomitant]
     Indication: GRAFT VERSUS HOST DISEASE
     Dosage: UNK
  3. MYCOPHENOLATE MOFETIL [Concomitant]
     Indication: GRAFT VERSUS HOST DISEASE
     Dosage: UNK
  4. METHYLPEDNISOLONE SODIUM SUCCINATE [Concomitant]
     Indication: GRAFT VERSUS HOST DISEASE
  5. HEPARIN [Concomitant]
     Dosage: UNK
  6. STATINS [Concomitant]
     Dosage: UNK
  7. DEFIBROTIDE [Concomitant]
     Dosage: UNK
  8. CYCLOPHOSPHAMIDE [Concomitant]
     Indication: GRAFT VERSUS HOST DISEASE
     Dosage: UNK

REACTIONS (10)
  - PULMONARY ARTERIAL HYPERTENSION [None]
  - ANGIOPATHY [None]
  - ACUTE GRAFT VERSUS HOST DISEASE IN INTESTINE [None]
  - HUMAN HERPESVIRUS 6 INFECTION [None]
  - RESPIRATORY FAILURE [None]
  - CYTOMEGALOVIRUS INFECTION [None]
  - PLEURAL EFFUSION [None]
  - RENAL FAILURE [None]
  - THROMBOTIC MICROANGIOPATHY [None]
  - HAEMATURIA [None]
